FAERS Safety Report 9894743 (Version 1)
Quarter: 2014Q1

REPORT INFORMATION
  Report Type: Spontaneous
  Country: TW (occurrence: TW)
  Receive Date: 20140213
  Receipt Date: 20140213
  Transmission Date: 20141002
  Serious: Yes (Other)
  Sender: FDA-Public Use
  Company Number: PHHY2014TW015682

PATIENT
  Sex: 0

DRUGS (8)
  1. 5-FLUOROURACIL [Suspect]
     Indication: PANCREATIC CARCINOMA
     Dosage: 2200 MG/M2, UNK
  2. LEUCOVORIN CALCIUM [Suspect]
     Indication: PANCREATIC CARCINOMA
     Dosage: 150 MG/M2, UNK
  3. EPIRUBICIN [Suspect]
     Indication: PANCREATIC CARCINOMA
     Dosage: 10 MG/M2, UNK
  4. CISPLATIN [Suspect]
     Indication: PANCREATIC CARCINOMA
     Dosage: 25 MG/M2, UNK
  5. ETOPOSIDE [Suspect]
     Indication: PANCREATIC CARCINOMA
     Dosage: 50 MG/M2, UNK
  6. MEGESTROL ACETATE [Suspect]
     Indication: PANCREATIC CARCINOMA
     Dosage: 160 MG, UNK
     Route: 048
  7. DEXAMETHASONE [Concomitant]
  8. SEROTONIN ANTAGONISTS [Concomitant]

REACTIONS (1)
  - Leukopenia [Unknown]
